FAERS Safety Report 14236360 (Version 1)
Quarter: 2017Q4

REPORT INFORMATION
  Report Type: Spontaneous
  Country: CA (occurrence: CA)
  Receive Date: 20171129
  Receipt Date: 20171129
  Transmission Date: 20180321
  Serious: Yes (Other)
  Sender: FDA-Public Use
  Company Number: CA-ORION CORPORATION ORION PHARMA-TREX2017-3847

PATIENT
  Sex: Female

DRUGS (10)
  1. ORENCIA [Suspect]
     Active Substance: ABATACEPT
     Indication: RHEUMATOID ARTHRITIS
     Route: 042
  2. ACTONEL [Concomitant]
     Active Substance: RISEDRONATE SODIUM
     Route: 065
  3. ACTEMRA [Suspect]
     Active Substance: TOCILIZUMAB
     Route: 065
  4. PREDNISONE. [Suspect]
     Active Substance: PREDNISONE
     Route: 065
  5. METHOTREXATE (TRADE NAME UNKNOWN) [Suspect]
     Active Substance: METHOTREXATE
     Indication: RHEUMATOID ARTHRITIS
     Route: 065
  6. ENBREL [Suspect]
     Active Substance: ETANERCEPT
     Indication: RHEUMATOID ARTHRITIS
     Route: 065
  7. CIMZIA [Suspect]
     Active Substance: CERTOLIZUMAB PEGOL
     Route: 065
  8. HYDROXYCHLOROQUINE [Suspect]
     Active Substance: HYDROXYCHLOROQUINE
     Route: 065
  9. ESOMEPRAZOLE MAGNESIUM W/NAPROXEN [Concomitant]
     Active Substance: ESOMEPRAZOLE MAGNESIUM\NAPROXEN
     Route: 065
  10. ARAVA [Suspect]
     Active Substance: LEFLUNOMIDE
     Route: 065

REACTIONS (18)
  - Drug dose omission [Not Recovered/Not Resolved]
  - Diarrhoea [Not Recovered/Not Resolved]
  - Rheumatoid arthritis [Not Recovered/Not Resolved]
  - Drug ineffective [Not Recovered/Not Resolved]
  - Hypoaesthesia [Not Recovered/Not Resolved]
  - Rheumatoid nodule [Not Recovered/Not Resolved]
  - Systemic lupus erythematosus rash [Not Recovered/Not Resolved]
  - Joint swelling [Not Recovered/Not Resolved]
  - Rash [Not Recovered/Not Resolved]
  - Weight decreased [Not Recovered/Not Resolved]
  - Anal abscess [Not Recovered/Not Resolved]
  - Impaired work ability [Not Recovered/Not Resolved]
  - Malaise [Not Recovered/Not Resolved]
  - Endodontic procedure [Not Recovered/Not Resolved]
  - Arthralgia [Not Recovered/Not Resolved]
  - Swelling [Not Recovered/Not Resolved]
  - Pain [Not Recovered/Not Resolved]
  - Tooth infection [Not Recovered/Not Resolved]
